FAERS Safety Report 4520192-3 (Version None)
Quarter: 2004Q4

REPORT INFORMATION
  Report Type: 
  Country: None (occurrence: None)
  Receive Date: 20041101
  Receipt Date: 20040917
  Transmission Date: 20050328
  Serious: Yes (Other)
  Sender: FDA-Public Use
  Company Number: 200410767BCA

PATIENT
  Age: 57 Year
  Sex: Female

DRUGS (1)
  1. GAMIMUNE N 10% [Suspect]
     Indication: IDIOPATHIC THROMBOCYTOPENIC PURPURA
     Dosage: 90 G, TOTAL DAILY, INTRAVENOUS
     Route: 042

REACTIONS (5)
  - BODY TEMPERATURE INCREASED [None]
  - CHILLS [None]
  - HYPOTENSION [None]
  - NAUSEA [None]
  - VOMITING [None]
